FAERS Safety Report 19159515 (Version 1)
Quarter: 2021Q2

REPORT INFORMATION
  Report Type: Spontaneous
  Country: LU (occurrence: LU)
  Receive Date: 20210420
  Receipt Date: 20210420
  Transmission Date: 20210717
  Serious: Yes (Other)
  Sender: FDA-Public Use
  Company Number: LU-ASTRAZENECA-2021A299544

PATIENT
  Age: 64 Year
  Sex: Female
  Weight: 79 kg

DRUGS (2)
  1. CAELYX [Suspect]
     Active Substance: DOXORUBICIN HYDROCHLORIDE
     Indication: BREAST CANCER
     Dosage: 76.9MG EVERY CYCLE
     Route: 042
     Dates: start: 20210223, end: 20210223
  2. FASLODEX [Suspect]
     Active Substance: FULVESTRANT
     Route: 030
     Dates: start: 20200212

REACTIONS (2)
  - Cell death [Not Recovered/Not Resolved]
  - Hepatitis cholestatic [Not Recovered/Not Resolved]

NARRATIVE: CASE EVENT DATE: 20210322
